FAERS Safety Report 5522296-5 (Version None)
Quarter: 2007Q4

REPORT INFORMATION
  Report Type: 
  Country: None (occurrence: None)
  Receive Date: 20071120
  Receipt Date: 20071108
  Transmission Date: 20080405
  Serious: Yes (Other)
  Sender: FDA-Public Use
  Company Number: CA-ELI_LILLY_AND_COMPANY-CA200707004398

PATIENT
  Sex: Female

DRUGS (10)
  1. FORTEO [Suspect]
     Indication: OSTEOPOROSIS
     Dosage: 20 UG, DAILY (1/D)
     Route: 058
     Dates: start: 20060802
  2. ATACAND [Concomitant]
     Dosage: 16 MG, UNK
  3. LOSEC [Concomitant]
     Dosage: 20 MG, UNK
  4. ASPRO [Concomitant]
     Dosage: 81 MG, UNK
  5. ELTROXIN [Concomitant]
  6. ARTHROTEC [Concomitant]
     Dosage: 75 MG, 2/D
  7. LIPITOR [Concomitant]
     Dosage: 10 MG, UNK
  8. CALTRATE [Concomitant]
  9. VITAMIN D [Concomitant]
     Dosage: 400 IU, UNK
  10. GLUCOSAMINE [Concomitant]

REACTIONS (4)
  - BONE DISORDER [None]
  - CEREBROVASCULAR ACCIDENT [None]
  - MEMORY IMPAIRMENT [None]
  - PAIN [None]
